FAERS Safety Report 15898701 (Version 2)
Quarter: 2019Q1

REPORT INFORMATION
  Report Type: Spontaneous
  Country: US (occurrence: US)
  Receive Date: 20190201
  Receipt Date: 20190226
  Transmission Date: 20190417
  Serious: No
  Sender: FDA-Public Use
  Company Number: US-TEVA-2019-US-1005924

PATIENT
  Age: 43 Year
  Sex: Female

DRUGS (1)
  1. JUNEL FE 28 DAY [Suspect]
     Active Substance: ETHINYL ESTRADIOL\NORETHINDRONE ACETATE
     Indication: CONTRACEPTION
     Dosage: FORM STRENGTH: NORETHINDRONE W/ETHINYLESTRADIOL W/IRON 1 MG/20 MCG
     Route: 065
     Dates: start: 201810

REACTIONS (13)
  - Panic reaction [Recovering/Resolving]
  - Tremor [Recovering/Resolving]
  - Cognitive disorder [Recovering/Resolving]
  - Disturbance in attention [Recovering/Resolving]
  - Feeling abnormal [Recovering/Resolving]
  - Hormone level abnormal [Unknown]
  - Balance disorder [Recovering/Resolving]
  - Negative thoughts [Recovering/Resolving]
  - Anxiety [Recovering/Resolving]
  - Poor quality product administered [Unknown]
  - Thinking abnormal [Recovering/Resolving]
  - Dizziness [Recovering/Resolving]
  - Malaise [Recovering/Resolving]

NARRATIVE: CASE EVENT DATE: 201810
